FAERS Safety Report 9918638 (Version 1)
Quarter: 2014Q1

REPORT INFORMATION
  Report Type: Spontaneous
  Country: FR (occurrence: FR)
  Receive Date: 20140224
  Receipt Date: 20140224
  Transmission Date: 20141002
  Serious: Yes (Hospitalization)
  Sender: FDA-Public Use
  Company Number: FR-BRISTOL-MYERS SQUIBB COMPANY-20232427

PATIENT
  Age: 76 Year
  Sex: Male

DRUGS (7)
  1. ERBITUX SOLN FOR INF [Suspect]
     Indication: NASAL CAVITY CANCER
     Route: 042
     Dates: start: 20131114, end: 20131224
  2. PENTOXIFYLLINE [Concomitant]
  3. CANDESARTAN [Concomitant]
  4. SIMVASTATIN [Concomitant]
  5. BISOPROLOL FUMARATE [Concomitant]
  6. BROMAZEPAM [Concomitant]
  7. TRINITRINE [Concomitant]

REACTIONS (3)
  - Hyperthermia [Unknown]
  - Chills [Unknown]
  - Malaise [Unknown]
